FAERS Safety Report 23246963 (Version 1)
Quarter: 2023Q4

REPORT INFORMATION
  Report Type: Spontaneous
  Country: ZA (occurrence: ZA)
  Receive Date: 20231130
  Receipt Date: 20231130
  Transmission Date: 20240110
  Serious: Yes (Disabling, Other)
  Sender: FDA-Public Use
  Company Number: ZA-PFIZER INC-202300410763

PATIENT
  Sex: Female
  Weight: 55 kg

DRUGS (7)
  1. METHOTREXATE SODIUM [Suspect]
     Active Substance: METHOTREXATE SODIUM
     Dosage: 17.5 MG
     Dates: start: 20110429
  2. SULFASALAZINE [Suspect]
     Active Substance: SULFASALAZINE
     Dosage: UNK, 2X/DAY
     Dates: start: 201208
  3. ACTEMRA [Suspect]
     Active Substance: TOCILIZUMAB
     Dosage: UNK
     Dates: start: 2022
  4. CHLOROQUINE [Suspect]
     Active Substance: CHLOROQUINE
     Dosage: 5 DAYS/WEEK
     Dates: start: 20111017
  5. PREDNISONE [Concomitant]
     Active Substance: PREDNISONE
     Dosage: 7.5 MG
  6. ARCOXIA [Concomitant]
     Active Substance: ETORICOXIB
     Dosage: 90 MG
  7. ENBREL [Concomitant]
     Active Substance: ETANERCEPT
     Dosage: UNK
     Dates: start: 20231108

REACTIONS (6)
  - Rheumatoid arthritis [Unknown]
  - Walking disability [Unknown]
  - Rotator cuff syndrome [Unknown]
  - Influenza [Unknown]
  - Joint dislocation [Unknown]
  - Drug ineffective [Unknown]
